FAERS Safety Report 5145227-9 (Version None)
Quarter: 2006Q4

REPORT INFORMATION
  Report Type: 
  Country: None (occurrence: None)
  Receive Date: 20061031
  Receipt Date: 20061017
  Transmission Date: 20070319
  Serious: Yes (Other)
  Sender: FDA-Public Use
  Company Number: 231376

PATIENT
  Age: 24 Year
  Sex: Female

DRUGS (2)
  1. RITUXAN [Suspect]
     Indication: HAEMOLYTIC ANAEMIA
     Dates: start: 20060301
  2. UNSPECIFIED MEDICATION (GENERIC COMPONENT(S) NOT KNOWN) [Concomitant]

REACTIONS (3)
  - DISEASE RECURRENCE [None]
  - HAEMOLYTIC ANAEMIA [None]
  - PNEUMOCYSTIS JIROVECI PNEUMONIA [None]
